FAERS Safety Report 13951708 (Version 1)
Quarter: 2017Q3

REPORT INFORMATION
  Report Type: Spontaneous
  Country: US (occurrence: US)
  Receive Date: 20170908
  Receipt Date: 20170908
  Transmission Date: 20171128
  Serious: No
  Sender: FDA-Public Use
  Company Number: US-STALLERGENES SAS-2025790

PATIENT
  Age: 13 Year
  Sex: Female

DRUGS (5)
  1. ORALAIR [Suspect]
     Active Substance: ANTHOXANTHUM ODORATUM POLLEN\DACTYLIS GLOMERATA POLLEN\LOLIUM PERENNE POLLEN\PHLEUM PRATENSE POLLEN\POA PRATENSIS POLLEN
     Indication: RHINITIS ALLERGIC
     Route: 060
     Dates: start: 201703
  2. EPIPEN [Concomitant]
     Active Substance: EPINEPHRINE
  3. DYMISTA [Concomitant]
     Active Substance: AZELASTINE HYDROCHLORIDE\FLUTICASONE PROPIONATE
  4. MULTIVITAMIN [Concomitant]
     Active Substance: VITAMINS
  5. ZYRTEC [Concomitant]
     Active Substance: CETIRIZINE HYDROCHLORIDE

REACTIONS (6)
  - Oropharyngeal pain [Not Recovered/Not Resolved]
  - Vomiting [Recovered/Resolved]
  - Feeling abnormal [Not Recovered/Not Resolved]
  - Abdominal discomfort [Recovered/Resolved]
  - Throat irritation [Recovered/Resolved]
  - Oral pruritus [Not Recovered/Not Resolved]

NARRATIVE: CASE EVENT DATE: 20170327
